FAERS Safety Report 4332027-2 (Version None)
Quarter: 2004Q2

REPORT INFORMATION
  Report Type: 
  Country: None (occurrence: None)
  Receive Date: 20040405
  Receipt Date: 20040327
  Transmission Date: 20050107
  Serious: Yes (Other)
  Sender: FDA-Public Use
  Company Number: PHNU2004DE01419

PATIENT
  Sex: Male

DRUGS (8)
  1. LAMISIL [Suspect]
     Dosage: UNK, PRN
     Route: 065
     Dates: start: 19960101
  2. METOPROLOL SUCCINATE [Concomitant]
  3. MARAX [Concomitant]
  4. RIOPAN [Concomitant]
  5. OMNIC [Concomitant]
  6. ASPIRIN [Concomitant]
  7. MUSARIL [Concomitant]
  8. SIMVASTATIN [Concomitant]

REACTIONS (2)
  - CATARACT [None]
  - VISUAL ACUITY REDUCED [None]
